FAERS Safety Report 9648036 (Version 1)
Quarter: 2013Q4

REPORT INFORMATION
  Report Type: Spontaneous
  Country: GB (occurrence: GB)
  Receive Date: 20131028
  Receipt Date: 20131028
  Transmission Date: 20140711
  Serious: Yes (Hospitalization, Other)
  Sender: FDA-Public Use
  Company Number: GB-MERCK-1310GBR011209

PATIENT
  Age: 78 Year
  Sex: Male

DRUGS (11)
  1. SIMVASTATIN [Suspect]
     Indication: DRESSLER^S SYNDROME
     Dosage: 40 MG, QD
     Route: 048
     Dates: end: 20131002
  2. FUSIDATE SODIUM [Suspect]
     Indication: OSTEOMYELITIS CHRONIC
     Dosage: 500 MG, TID
     Route: 048
  3. ASPIRIN [Concomitant]
  4. DOMPERIDONE [Concomitant]
  5. ENOXAPARIN SODIUM [Concomitant]
  6. FLUCLOXACILLIN [Concomitant]
  7. LACTULOSE [Concomitant]
  8. OMEPRAZOLE [Concomitant]
  9. ACETAMINOPHEN [Concomitant]
  10. TAMSULOSIN HYDROCHLORIDE [Concomitant]
  11. TRAMADOL [Concomitant]

REACTIONS (1)
  - Renal failure acute [Recovering/Resolving]
